FAERS Safety Report 4360995-1 (Version None)
Quarter: 2004Q2

REPORT INFORMATION
  Report Type: 
  Country: None (occurrence: None)
  Receive Date: 20040519
  Receipt Date: 20040519
  Transmission Date: 20050107
  Serious: Yes (Other)
  Sender: FDA-Public Use
  Company Number: None

PATIENT
  Age: 36 Year
  Sex: Female
  Weight: 47.6277 kg

DRUGS (4)
  1. FERRLECIT [Suspect]
     Indication: IRON DEFICIENCY ANAEMIA
     Dosage: 125 MG IVPB X 4 DOSES
     Route: 042
     Dates: start: 20040413
  2. FERRLECIT [Suspect]
     Indication: IRON DEFICIENCY ANAEMIA
     Dosage: 125 MG IVPB X 4 DOSES
     Route: 042
     Dates: start: 20040415
  3. FERRLECIT [Suspect]
     Indication: IRON DEFICIENCY ANAEMIA
     Dosage: 125 MG IVPB X 4 DOSES
     Route: 042
     Dates: start: 20040416
  4. FERRLECIT [Suspect]
     Indication: IRON DEFICIENCY ANAEMIA
     Dosage: 125 MG IVPB X 4 DOSES
     Route: 042
     Dates: start: 20040417

REACTIONS (5)
  - BURNING SENSATION [None]
  - HYPOAESTHESIA [None]
  - PARAESTHESIA [None]
  - SENSATION OF HEAVINESS [None]
  - VAGINAL DISORDER [None]
